FAERS Safety Report 7722545-9 (Version None)
Quarter: 2011Q3

REPORT INFORMATION
  Report Type: 
  Country: None (occurrence: None)
  Receive Date: 20110831
  Receipt Date: 20110826
  Transmission Date: 20111222
  Serious: Yes (Life-Threatening, Hospitalization, Other)
  Sender: FDA-Public Use
  Company Number: PHHY2011US36144

PATIENT
  Sex: Male

DRUGS (7)
  1. AFINITOR [Suspect]
     Dosage: 10 MG, DAILY
     Route: 048
     Dates: start: 20101025, end: 20110301
  2. SIMVASTATIN [Concomitant]
     Dosage: 20 MG, QD
  3. AFINITOR [Suspect]
     Dosage: 5 MG, QD
     Route: 048
  4. KEPPRA [Concomitant]
     Dosage: 500 MG, BID
  5. AFINITOR [Suspect]
     Indication: RENAL CANCER
     Route: 047
  6. ZOMETA [Suspect]
     Indication: METASTASES TO BONE
     Route: 030
  7. NEXAVAR [Concomitant]

REACTIONS (13)
  - URINARY TRACT INFECTION [None]
  - RENAL FAILURE [None]
  - CELLULITIS [None]
  - SUBDURAL HAEMATOMA [None]
  - CEREBRAL HAEMORRHAGE [None]
  - SEPSIS SYNDROME [None]
  - FATIGUE [None]
  - CONFUSIONAL STATE [None]
  - HEADACHE [None]
  - WEIGHT DECREASED [None]
  - MENTAL STATUS CHANGES [None]
  - CONTUSION [None]
  - FALL [None]
